FAERS Safety Report 21145794 (Version 1)
Quarter: 2022Q3

REPORT INFORMATION
  Report Type: Spontaneous
  Country: CA (occurrence: CA)
  Receive Date: 20220729
  Receipt Date: 20220729
  Transmission Date: 20221027
  Serious: Yes (Other)
  Sender: FDA-Public Use
  Company Number: CA-TEVA-2022-CA-2057988

PATIENT
  Age: 54 Year
  Sex: Female
  Weight: 97 kg

DRUGS (1)
  1. ALBUTEROL [Suspect]
     Active Substance: ALBUTEROL
     Indication: Upper respiratory tract infection
     Route: 055

REACTIONS (4)
  - Headache [Unknown]
  - Nausea [Unknown]
  - Oropharyngeal pain [Unknown]
  - Stomatitis [Unknown]
